FAERS Safety Report 23992237 (Version 1)
Quarter: 2024Q2

REPORT INFORMATION
  Report Type: Spontaneous
  Country: TW (occurrence: TW)
  Receive Date: 20240620
  Receipt Date: 20240620
  Transmission Date: 20240716
  Serious: Yes (Other)
  Sender: FDA-Public Use
  Company Number: TW-STRIDES ARCOLAB LIMITED-2024SP007140

PATIENT
  Age: 63 Year
  Sex: Male

DRUGS (4)
  1. PREDNISOLONE [Suspect]
     Active Substance: PREDNISOLONE
     Indication: Splenic marginal zone lymphoma stage IV
     Dosage: UNK, (SCHEDULED TO RECEIVE FOUR COURSES)
     Route: 065
  2. VINCRISTINE [Suspect]
     Active Substance: VINCRISTINE
     Indication: Splenic marginal zone lymphoma stage IV
     Dosage: UNK (SCHEDULED TO RECEIVE FOUR COURSES)
     Route: 065
  3. CYCLOPHOSPHAMIDE [Suspect]
     Active Substance: CYCLOPHOSPHAMIDE
     Indication: Splenic marginal zone lymphoma stage IV
     Dosage: UNK (SCHEDULED TO RECEIVE FOUR COURSES)
     Route: 065
  4. RITUXIMAB [Suspect]
     Active Substance: RITUXIMAB
     Indication: Splenic marginal zone lymphoma stage IV
     Dosage: UNK (SCHEDULED TO RECEIVE SIX COURSES)
     Route: 065

REACTIONS (1)
  - Gastric ulcer haemorrhage [Unknown]
